FAERS Safety Report 21976576 (Version 5)
Quarter: 2023Q1

REPORT INFORMATION
  Report Type: Spontaneous
  Country: US (occurrence: US)
  Receive Date: 20230210
  Receipt Date: 20230328
  Transmission Date: 20230418
  Serious: Yes (Hospitalization, Other)
  Sender: FDA-Public Use
  Company Number: US-PFIZER INC-PV202300023890

PATIENT
  Age: 5 Year
  Sex: Male
  Weight: 16.962 kg

DRUGS (1)
  1. GENOTROPIN [Suspect]
     Active Substance: SOMATROPIN
     Indication: Growth hormone deficiency
     Dosage: 0.7 MG, DAILY
     Dates: start: 202301

REACTIONS (5)
  - Drug dose omission by device [Recovered/Resolved]
  - Wrong technique in device usage process [Recovered/Resolved]
  - Device leakage [Recovered/Resolved]
  - Device issue [Recovered/Resolved]
  - Device breakage [Recovered/Resolved]

NARRATIVE: CASE EVENT DATE: 20230201
